FAERS Safety Report 4329738-1 (Version None)
Quarter: 2004Q2

REPORT INFORMATION
  Report Type: 
  Country: None (occurrence: None)
  Receive Date: 20040401
  Receipt Date: 20040330
  Transmission Date: 20050107
  Serious: Yes (Death)
  Sender: FDA-Public Use
  Company Number: US-GLAXOSMITHKLINE-A0505095A

PATIENT
  Age: 49 Year
  Sex: Female

DRUGS (3)
  1. WELLBUTRIN [Suspect]
     Indication: EX-SMOKER
     Dosage: 150MG PER DAY
     Route: 048
     Dates: start: 20040301, end: 20040320
  2. ANTIBIOTIC [Concomitant]
  3. BENADRYL [Concomitant]
     Indication: HYPERSENSITIVITY

REACTIONS (1)
  - COMPLETED SUICIDE [None]
